FAERS Safety Report 4525103-2 (Version None)
Quarter: 2004Q4

REPORT INFORMATION
  Report Type: 
  Country: None (occurrence: None)
  Receive Date: 20041116
  Receipt Date: 20040806
  Transmission Date: 20050328
  Serious: Yes (Hospitalization)
  Sender: FDA-Public Use
  Company Number: S04-USA-05604-03

PATIENT
  Age: 86 Year
  Sex: Female
  Weight: 40.3701 kg

DRUGS (9)
  1. NAMENDA [Suspect]
     Indication: DEMENTIA
     Dosage: 10 MG BID PO
     Route: 048
     Dates: start: 20040526, end: 20040708
  2. NAMENDA [Suspect]
     Indication: DEMENTIA
     Dosage: 5 MG QD PO
     Route: 048
     Dates: start: 20040505, end: 20040511
  3. NAMENDA [Suspect]
     Indication: DEMENTIA
     Dosage: 5 MG BID PO
     Route: 048
     Dates: start: 20040512, end: 20040518
  4. NAMENDA [Suspect]
     Indication: DEMENTIA
     Dosage: 10 MG QAM PO
     Route: 048
     Dates: start: 20040519, end: 20040525
  5. NAMENDA [Suspect]
     Indication: DEMENTIA
     Dosage: 5 MG QD PO
     Route: 048
     Dates: start: 20040519, end: 20040525
  6. ARICEPT [Concomitant]
  7. MYSOLINE [Concomitant]
  8. REMERON [Concomitant]
  9. SINEMET [Concomitant]

REACTIONS (2)
  - URINARY TRACT INFECTION [None]
  - WEIGHT DECREASED [None]
